FAERS Safety Report 10442820 (Version 1)
Quarter: 2014Q3

REPORT INFORMATION
  Report Type: Spontaneous
  Country: HN (occurrence: HN)
  Receive Date: 20140909
  Receipt Date: 20140909
  Transmission Date: 20150326
  Serious: Yes (Hospitalization, Disabling)
  Sender: FDA-Public Use
  Company Number: PHHY2014HN108535

PATIENT
  Age: 20 Year
  Sex: Female
  Weight: 45.81 kg

DRUGS (8)
  1. NIFEDIPIN [Concomitant]
     Active Substance: NIFEDIPINE
     Dosage: 20 MG, Q12H
  2. PROPANOLOL [Concomitant]
     Active Substance: PROPRANOLOL HYDROCHLORIDE
     Dosage: 40 MG, AT MORNING (AM)
  3. RANITIDIN [Concomitant]
     Active Substance: RANITIDINE HYDROCHLORIDE
     Dosage: 150 MG, PER DAY
  4. ETALPHA [Concomitant]
     Active Substance: ALFACALCIDOL
     Dosage: 1 UG, HS
  5. ALOPURINOL [Concomitant]
     Active Substance: ALLOPURINOL
     Dosage: 150 MG, PER DAY
  6. PREDNISONE. [Concomitant]
     Active Substance: PREDNISONE
     Dosage: 10 MG, UNK
  7. MYCOPHENOLATE [Concomitant]
     Active Substance: MYCOPHENOLIC ACID
     Dosage: 750 MG, PER DAY
  8. NEORAL [Suspect]
     Active Substance: CYCLOSPORINE
     Indication: RENAL TRANSPLANT
     Dosage: 100 MG, ONE CAPSULE PER DAY
     Route: 048
     Dates: start: 20081014

REACTIONS (1)
  - Intracranial pressure increased [Not Recovered/Not Resolved]

NARRATIVE: CASE EVENT DATE: 20140620
